FAERS Safety Report 14575653 (Version 2)
Quarter: 2018Q2

REPORT INFORMATION
  Report Type: Spontaneous
  Country: TW (occurrence: TW)
  Receive Date: 20180227
  Receipt Date: 20180405
  Transmission Date: 20180711
  Serious: Yes (Other)
  Sender: FDA-Public Use
  Company Number: TW-SUN PHARMACEUTICAL INDUSTRIES LTD-2018R1-163676

PATIENT
  Age: 54 Year
  Sex: Male

DRUGS (5)
  1. FLUPENTHIXOL [Concomitant]
     Active Substance: FLUPENTIXOL
     Indication: PRODUCT USED FOR UNKNOWN INDICATION
     Dosage: 40 MG, EVERY 2 WEEKS
     Route: 030
  2. CLOZAPINE. [Suspect]
     Active Substance: CLOZAPINE
     Dosage: 400 MG, DAILY
     Route: 065
  3. CLOZAPINE. [Suspect]
     Active Substance: CLOZAPINE
     Dosage: 250 MG, DAILY
     Route: 065
  4. CLOZAPINE. [Suspect]
     Active Substance: CLOZAPINE
     Dosage: GRADUALLY TITRATED 200 MG, DAILY
     Route: 065
  5. CLOZAPINE. [Suspect]
     Active Substance: CLOZAPINE
     Indication: ELECTROCONVULSIVE THERAPY
     Dosage: 100 MG, DAILY
     Route: 065

REACTIONS (3)
  - Therapeutic response decreased [Unknown]
  - Eosinophilia [Recovering/Resolving]
  - Hypersensitivity [Unknown]
